FAERS Safety Report 5977835-7 (Version None)
Quarter: 2008Q4

REPORT INFORMATION
  Report Type: 
  Country: None (occurrence: None)
  Receive Date: 20081203
  Receipt Date: 20080116
  Transmission Date: 20090506
  Serious: No
  Sender: FDA-Public Use
  Company Number: PR-BRISTOL-MYERS SQUIBB COMPANY-14044218

PATIENT

DRUGS (1)
  1. VIDEX [Suspect]

REACTIONS (1)
  - BLOOD URIC ACID INCREASED [None]
